FAERS Safety Report 4866433-4 (Version None)
Quarter: 2005Q4

REPORT INFORMATION
  Report Type: 
  Country: None (occurrence: None)
  Receive Date: 20051227
  Receipt Date: 20051005
  Transmission Date: 20060501
  Serious: Yes (Hospitalization)
  Sender: FDA-Public Use
  Company Number: US-MERCK-0510USA05373

PATIENT
  Age: 71 Year
  Sex: Female
  Weight: 59 kg

DRUGS (2)
  1. VIOXX [Suspect]
     Indication: PAIN
     Route: 048
     Dates: start: 19990801, end: 19991001
  2. VASOTEC [Concomitant]
     Route: 048

REACTIONS (32)
  - ANAEMIA [None]
  - AORTIC VALVE INCOMPETENCE [None]
  - ATRIAL FIBRILLATION [None]
  - BACTERAEMIA [None]
  - CARDIOVASCULAR DISORDER [None]
  - CEREBROVASCULAR ACCIDENT [None]
  - DEHYDRATION [None]
  - DIVERTICULUM [None]
  - DRUG INEFFECTIVE [None]
  - DRUG INTOLERANCE [None]
  - DYSPHAGIA [None]
  - EJECTION FRACTION DECREASED [None]
  - FOOT FRACTURE [None]
  - GASTROINTESTINAL HAEMORRHAGE [None]
  - HAEMATOMA [None]
  - HIATUS HERNIA [None]
  - HYPOVOLAEMIA [None]
  - INTERNATIONAL NORMALISED RATIO INCREASED [None]
  - MALNUTRITION [None]
  - MITRAL VALVE INCOMPETENCE [None]
  - MYOCARDIAL INFARCTION [None]
  - NEUROPATHY [None]
  - OXYGEN SATURATION DECREASED [None]
  - PEPTIC ULCER [None]
  - PERICARDIAL EFFUSION [None]
  - PERIPHERAL VASCULAR DISORDER [None]
  - PLEURAL EFFUSION [None]
  - PULMONARY HYPERTENSION [None]
  - RENAL CYST [None]
  - THROMBOPHLEBITIS SUPERFICIAL [None]
  - TRICUSPID VALVE INCOMPETENCE [None]
  - URINARY TRACT INFECTION [None]
